FAERS Safety Report 4748596-4 (Version None)
Quarter: 2005Q3

REPORT INFORMATION
  Report Type: 
  Country: None (occurrence: None)
  Receive Date: 20050817
  Receipt Date: 20050808
  Transmission Date: 20060218
  Serious: Yes (Other)
  Sender: FDA-Public Use
  Company Number: 214249

PATIENT
  Age: 14 Year
  Sex: Male
  Weight: 47.2 kg

DRUGS (1)
  1. NUTROPIN AQ [Suspect]
     Indication: GROWTH HORMONE DEFICIENCY
     Dosage: 2.4 MG, 6/WEEK, SUBCUTANEOUS
     Route: 058
     Dates: start: 20041211, end: 20050425

REACTIONS (7)
  - CHEST PAIN [None]
  - FUNGAL INFECTION [None]
  - HISTOPLASMOSIS [None]
  - LUNG INFILTRATION [None]
  - MYCOBACTERIAL INFECTION [None]
  - PLEURAL EFFUSION [None]
  - TUBERCULOSIS [None]
